FAERS Safety Report 20361080 (Version 1)
Quarter: 2022Q1

REPORT INFORMATION
  Report Type: Spontaneous
  Country: US (occurrence: None)
  Receive Date: 20220120
  Receipt Date: 20220120
  Transmission Date: 20220423
  Serious: Yes (Hospitalization)
  Sender: FDA-Public Use
  Company Number: None

PATIENT
  Sex: Female

DRUGS (1)
  1. BETHKIS [Suspect]
     Active Substance: TOBRAMYCIN
     Indication: Cystic fibrosis
     Dosage: 300MG/4ML?INHALE 4 ML (300 MG) VIA NEBULIZER TWO TIMES DAILY FOR 28 DAYS ON AND 28 DAYS OFF?
     Route: 055
     Dates: start: 20210115

REACTIONS (1)
  - Pneumonia [None]
